FAERS Safety Report 14149773 (Version 3)
Quarter: 2017Q4

REPORT INFORMATION
  Report Type: Report from Study
  Country: US (occurrence: US)
  Receive Date: 20171101
  Receipt Date: 20171108
  Transmission Date: 20180321
  Serious: Yes (Hospitalization, Other)
  Sender: FDA-Public Use
  Company Number: PHHO2017US005988

PATIENT
  Age: 35 Year
  Sex: Female
  Weight: 88.4 kg

DRUGS (4)
  1. COSENTYX [Suspect]
     Active Substance: SECUKINUMAB
     Indication: PSORIATIC ARTHROPATHY
     Dosage: 300 MG, UNK
     Route: 058
     Dates: start: 20140930, end: 20150930
  2. AIN457 [Suspect]
     Active Substance: SECUKINUMAB
     Dosage: 300 MG, QW4
     Route: 058
     Dates: start: 20170210, end: 20170309
  3. IBUPROFEN. [Suspect]
     Active Substance: IBUPROFEN
     Indication: PSORIATIC ARTHROPATHY
     Dosage: 800 MG, BID
     Route: 048
     Dates: start: 201407, end: 20170316
  4. AIN457 [Suspect]
     Active Substance: SECUKINUMAB
     Indication: PSORIATIC ARTHROPATHY
     Dosage: 300 MG, UNK (Q4 WEEKS)
     Route: 058
     Dates: start: 20151001, end: 20170309

REACTIONS (2)
  - Lower gastrointestinal haemorrhage [Recovered/Resolved]
  - Colitis ulcerative [Recovering/Resolving]

NARRATIVE: CASE EVENT DATE: 20170317
